FAERS Safety Report 6806497-1 (Version None)
Quarter: 2010Q2

REPORT INFORMATION
  Report Type: 
  Country: None (occurrence: None)
  Receive Date: 20100629
  Receipt Date: 20080411
  Transmission Date: 20101027
  Serious: No
  Sender: FDA-Public Use
  Company Number: US-PFIZER INC-2008021465

PATIENT
  Sex: Female
  Weight: 51.71 kg

DRUGS (4)
  1. ZYVOX [Suspect]
     Indication: STAPHYLOCOCCAL INFECTION
     Dates: start: 20080122, end: 20080221
  2. LUMIGAN [Concomitant]
  3. CYCLOSPORINE [Concomitant]
  4. GENTEAL [Concomitant]

REACTIONS (4)
  - DRY MOUTH [None]
  - KERATITIS HERPETIC [None]
  - KERATOCONJUNCTIVITIS SICCA [None]
  - VISION BLURRED [None]
